FAERS Safety Report 17272934 (Version 1)
Quarter: 2020Q1

REPORT INFORMATION
  Report Type: Spontaneous
  Country: US (occurrence: US)
  Receive Date: 20200115
  Receipt Date: 20200115
  Transmission Date: 20200409
  Serious: Yes (Other)
  Sender: FDA-Public Use
  Company Number: None

PATIENT
  Age: 60 Year
  Sex: Male
  Weight: 75 kg

DRUGS (13)
  1. SUGAMMADEX 200MG/2ML [Concomitant]
     Dates: start: 20200110, end: 20200110
  2. CEFAZOLIN 2GM [Concomitant]
     Dates: start: 20200110, end: 20200110
  3. LABETOLOL 25MG/5ML [Concomitant]
     Dates: start: 20200110, end: 20200110
  4. HYDROMORPHONE 1MG/ML [Concomitant]
     Active Substance: HYDROMORPHONE
     Dates: start: 20200110, end: 20200110
  5. ROCURONIUM [Suspect]
     Active Substance: ROCURONIUM BROMIDE
     Indication: SPINAL FUSION SURGERY
     Route: 042
  6. PROPOFOL 200MG/20ML [Concomitant]
     Active Substance: PROPOFOL
     Dates: start: 20200110, end: 20200110
  7. ACETAMINOPHEN 1000MG/10ML [Concomitant]
     Dates: start: 20200110, end: 20200110
  8. ODANSETRON 4MG/2ML [Concomitant]
     Dates: start: 20200110, end: 20200110
  9. FENTANYL TRANSDERMAL SYSTEM [Concomitant]
     Active Substance: FENTANYL
     Dates: end: 20200110
  10. MIDAZOLAM 2MG/2ML [Concomitant]
     Dates: start: 20200110, end: 20200110
  11. SUCCINYLCHOLINE 140MG/7ML [Concomitant]
     Dates: start: 20200110, end: 20200110
  12. DEXAMETHASONE 4MG/ML [Concomitant]
     Dates: start: 20200110, end: 20200110
  13. PHENYLEPHRINE 1MG/10ML [Concomitant]
     Dates: start: 20200110, end: 20200110

REACTIONS (3)
  - Product measured potency issue [None]
  - Therapeutic product effect decreased [None]
  - Therapeutic response decreased [None]

NARRATIVE: CASE EVENT DATE: 20200110
